FAERS Safety Report 5235527-6 (Version None)
Quarter: 2007Q1

REPORT INFORMATION
  Report Type: 
  Country: None (occurrence: None)
  Receive Date: 20070208
  Receipt Date: 20070208
  Transmission Date: 20070707
  Serious: Yes (Disabling)
  Sender: FDA-Public Use
  Company Number: None

PATIENT
  Age: 69 Year
  Sex: Male
  Weight: 50.2 kg

DRUGS (1)
  1. DEMEROL [Suspect]
     Indication: PAIN
     Dosage: 25-50 MG  Q1H  PRN   IV BOLUS
     Route: 040
     Dates: start: 20061016, end: 20061023

REACTIONS (15)
  - BLOOD PRESSURE DECREASED [None]
  - CHEYNE-STOKES RESPIRATION [None]
  - COLD SWEAT [None]
  - DEHYDRATION [None]
  - DEPRESSED LEVEL OF CONSCIOUSNESS [None]
  - EMPHYSEMA [None]
  - LOSS OF CONSCIOUSNESS [None]
  - MEDICATION ERROR [None]
  - MIOSIS [None]
  - PNEUMOTHORAX [None]
  - PULMONARY EMBOLISM [None]
  - RENAL MASS [None]
  - SKIN DISCOLOURATION [None]
  - SYNCOPE VASOVAGAL [None]
  - WRONG DRUG ADMINISTERED [None]
